FAERS Safety Report 5510439-9 (Version None)
Quarter: 2007Q4

REPORT INFORMATION
  Report Type: 
  Country: None (occurrence: None)
  Receive Date: 20071108
  Receipt Date: 20071101
  Transmission Date: 20080405
  Serious: Yes (Hospitalization)
  Sender: FDA-Public Use
  Company Number: US-ELI_LILLY_AND_COMPANY-US200711000196

PATIENT
  Sex: Female

DRUGS (3)
  1. CYMBALTA [Suspect]
     Indication: PAIN
     Dosage: 30 MG, UNK
     Route: 048
     Dates: start: 20061101, end: 20061102
  2. MORPHINE [Concomitant]
  3. RANITIDINE [Concomitant]

REACTIONS (11)
  - ANAPHYLACTIC SHOCK [None]
  - CARDIAC ARREST [None]
  - CONVULSION [None]
  - DYSPNOEA [None]
  - FALL [None]
  - FEELING ABNORMAL [None]
  - GAIT DISTURBANCE [None]
  - HYPOAESTHESIA ORAL [None]
  - OEDEMA PERIPHERAL [None]
  - SWOLLEN TONGUE [None]
  - TRISMUS [None]
